FAERS Safety Report 7525376-8 (Version None)
Quarter: 2011Q2

REPORT INFORMATION
  Report Type: 
  Country: None (occurrence: None)
  Receive Date: 20110602
  Receipt Date: 20110602
  Transmission Date: 20111010
  Serious: No
  Sender: FDA-Public Use
  Company Number: None

PATIENT
  Sex: Male
  Weight: 108.8633 kg

DRUGS (1)
  1. XALATAN [Suspect]
     Indication: GLAUCOMA
     Dosage: 1 GTT. QHS OU 1X DAILY EYE
     Route: 047

REACTIONS (3)
  - PRODUCT SUBSTITUTION ISSUE [None]
  - EYE IRRITATION [None]
  - ERYTHEMA [None]
